FAERS Safety Report 21650673 (Version 1)
Quarter: 2022Q4

REPORT INFORMATION
  Report Type: Spontaneous
  Country: US (occurrence: None)
  Receive Date: 20221124
  Receipt Date: 20221124
  Transmission Date: 20230113
  Serious: Yes (Disabling)
  Sender: FDA-Public Use
  Company Number: None

PATIENT
  Sex: Female

DRUGS (1)
  1. JADENU [Suspect]
     Active Substance: DEFERASIROX

REACTIONS (4)
  - Diarrhoea [None]
  - Vomiting [None]
  - Chronic kidney disease [None]
  - Liver injury [None]

NARRATIVE: CASE EVENT DATE: 20200323
